FAERS Safety Report 7447795-0 (Version None)
Quarter: 2011Q2

REPORT INFORMATION
  Report Type: 
  Country: None (occurrence: None)
  Receive Date: 20110429
  Receipt Date: 20100824
  Transmission Date: 20111010
  Serious: No
  Sender: FDA-Public Use
  Company Number: US-ASTRAZENECA-2010SE36549

PATIENT
  Age: 84 Year
  Sex: Male
  Weight: 73 kg

DRUGS (15)
  1. METOPROLOL SUCCINATE [Concomitant]
  2. NEXIUM [Suspect]
     Indication: GASTRIC DISORDER
     Route: 048
     Dates: start: 20100723
  3. KLOR-CON [Concomitant]
  4. NEXIUM [Suspect]
     Indication: GASTROOESOPHAGEAL REFLUX DISEASE
     Route: 048
     Dates: start: 20100723
  5. COUMADIN [Concomitant]
  6. HEART MEDICATION [Concomitant]
     Indication: CARDIAC DISORDER
  7. NIACIN [Concomitant]
  8. ALLOPURINOL [Concomitant]
  9. NEXIUM [Suspect]
     Indication: NON-CARDIAC CHEST PAIN
     Route: 048
     Dates: start: 20100723
  10. UROXATRAL [Concomitant]
  11. AN ASSORTMENT OF VITAMINS [Concomitant]
  12. TIAZAC [Concomitant]
  13. ZOCOR [Concomitant]
  14. TRIAMTERENE [Concomitant]
  15. FLOMAX [Concomitant]

REACTIONS (13)
  - POLLAKIURIA [None]
  - HAEMORRHAGE [None]
  - INTERNATIONAL NORMALISED RATIO INCREASED [None]
  - ABDOMINAL PAIN [None]
  - HEADACHE [None]
  - FATIGUE [None]
  - CHEST PAIN [None]
  - LETHARGY [None]
  - CHILLS [None]
  - COUGH [None]
  - ARTHRALGIA [None]
  - CONTUSION [None]
  - DYSPNOEA [None]
